FAERS Safety Report 18966010 (Version 1)
Quarter: 2021Q1

REPORT INFORMATION
  Report Type: Spontaneous
  Country: DE (occurrence: DE)
  Receive Date: 20210303
  Receipt Date: 20210303
  Transmission Date: 20210420
  Serious: Yes (Other)
  Sender: FDA-Public Use
  Company Number: DE-ALLERGAN-2108365US

PATIENT
  Sex: Male
  Weight: 74 kg

DRUGS (1)
  1. GANFORT [Suspect]
     Active Substance: BIMATOPROST\TIMOLOL
     Indication: BORDERLINE GLAUCOMA
     Dosage: UNK
     Route: 047
     Dates: start: 20160115

REACTIONS (3)
  - Exposure to toxic agent [Unknown]
  - Bladder neoplasm [Not Recovered/Not Resolved]
  - Bladder neoplasm [Unknown]

NARRATIVE: CASE EVENT DATE: 20180615
